FAERS Safety Report 9189320 (Version 1)
Quarter: 2013Q1

REPORT INFORMATION
  Report Type: Spontaneous
  Country: US (occurrence: None)
  Receive Date: 20130321
  Receipt Date: 20130321
  Transmission Date: 20140127
  Serious: No
  Sender: FDA-Public Use
  Company Number: None

PATIENT
  Age: 6 Year
  Sex: Male
  Weight: 24.4 kg

DRUGS (5)
  1. DAPSONE [Suspect]
     Indication: PNEUMOCYSTIS JIROVECII PNEUMONIA
     Route: 048
     Dates: start: 20120925, end: 20121008
  2. DAPSONE [Suspect]
     Indication: PROPHYLAXIS
     Route: 048
     Dates: start: 20120925, end: 20121008
  3. EMLA [Concomitant]
  4. ZOFRAN ODT [Concomitant]
  5. MERCAPTAPURINE LIQUID [Concomitant]

REACTIONS (1)
  - Methaemoglobinaemia [None]
